FAERS Safety Report 8869377 (Version 1)
Quarter: 2012Q4

REPORT INFORMATION
  Report Type: Spontaneous
  Country: QA (occurrence: None)
  Receive Date: 20121022
  Receipt Date: 20121022
  Transmission Date: 20130627
  Serious: Yes (Death, Hospitalization, Other)
  Sender: FDA-Public Use
  Company Number: 2012P1060858

PATIENT
  Age: 60 Year
  Sex: Female

DRUGS (10)
  1. DEXAMETHASONE [Suspect]
     Indication: SPINAL CORD COMPRESSION
  2. DEXAMETHASONE [Suspect]
     Indication: SPINAL CORD COMPRESSION
  3. ATORVASTATIN [Suspect]
     Indication: HYPERLIPIDEMIA
  4. OMEPRAZOLE [Suspect]
     Indication: PEPTIC ULCER
  5. OMEPRAZOLE [Suspect]
     Indication: PROPHYLAXIS
  6. CALCIUM CARBONATE [Concomitant]
  7. TRAMADOL [Concomitant]
  8. CELECOXIB [Concomitant]
  9. GABAPENTIN [Concomitant]
  10. BISACODYL [Concomitant]

REACTIONS (3)
  - Rhabdomyolysis [None]
  - Drug interaction [None]
  - Urosepsis [None]
